FAERS Safety Report 6795516-7 (Version None)
Quarter: 2010Q2

REPORT INFORMATION
  Report Type: 
  Country: None (occurrence: None)
  Receive Date: 20100625
  Receipt Date: 20100614
  Transmission Date: 20101027
  Serious: Yes (Other)
  Sender: FDA-Public Use
  Company Number: NO-JNJFOC-20100604411

PATIENT
  Sex: Female

DRUGS (3)
  1. REMICADE [Suspect]
     Indication: ANKYLOSING SPONDYLITIS
     Route: 042
  2. REMICADE [Suspect]
     Route: 042
  3. PIROXICAM [Concomitant]
     Route: 048

REACTIONS (4)
  - DERMATITIS PSORIASIFORM [None]
  - HYPERSENSITIVITY [None]
  - NAIL PSORIASIS [None]
  - RASH PAPULAR [None]
